FAERS Safety Report 26085396 (Version 1)
Quarter: 2025Q4

REPORT INFORMATION
  Report Type: Spontaneous
  Country: US (occurrence: US)
  Receive Date: 20251125
  Receipt Date: 20251125
  Transmission Date: 20260118
  Serious: No
  Sender: TORRENT PHARMA INC.
  Company Number: US-TORRENT-00014608

PATIENT
  Sex: Male

DRUGS (1)
  1. ORMALVI [Suspect]
     Active Substance: DICHLORPHENAMIDE
     Indication: Paralysis
     Dosage: UNKNOWN
     Route: 065
     Dates: start: 20251009

REACTIONS (2)
  - Paraesthesia [Not Recovered/Not Resolved]
  - Taste disorder [Recovering/Resolving]

NARRATIVE: CASE EVENT DATE: 20251001
